FAERS Safety Report 16019540 (Version 1)
Quarter: 2019Q1

REPORT INFORMATION
  Report Type: Report from Study
  Country: CA (occurrence: CA)
  Receive Date: 20190228
  Receipt Date: 20190228
  Transmission Date: 20190418
  Serious: Yes (Other)
  Sender: FDA-Public Use
  Company Number: CA-TEVA-2019-CA-1016779

PATIENT
  Sex: Female

DRUGS (10)
  1. COPAXONE [Suspect]
     Active Substance: GLATIRAMER ACETATE
     Indication: MULTIPLE SCLEROSIS
     Dosage: 20 MILLIGRAM DAILY;
     Route: 058
     Dates: start: 20150513, end: 201806
  2. MULTIVITAMIN [Concomitant]
     Active Substance: VITAMINS
  3. OMEGA 3 COMPLEX [Concomitant]
  4. SUPEUDOL [Concomitant]
     Active Substance: OXYCODONE HYDROCHLORIDE
  5. VITAMIN D [Concomitant]
     Active Substance: CHOLECALCIFEROL
  6. CALCIUM [Concomitant]
     Active Substance: CALCIUM
  7. LYRICA [Concomitant]
     Active Substance: PREGABALIN
  8. ZINC. [Concomitant]
     Active Substance: ZINC
  9. DIOVAN [Concomitant]
     Active Substance: VALSARTAN
  10. MAGNESIUM [Concomitant]
     Active Substance: MAGNESIUM

REACTIONS (7)
  - Hypersensitivity [Recovered/Resolved]
  - Immediate post-injection reaction [Recovered/Resolved]
  - Oxygen saturation decreased [Recovered/Resolved]
  - Dyspnoea [Recovered/Resolved]
  - Defaecation urgency [Recovered/Resolved]
  - Palpitations [Recovered/Resolved]
  - Chest discomfort [Recovered/Resolved]
